FAERS Safety Report 23265712 (Version 2)
Quarter: 2023Q4

REPORT INFORMATION
  Report Type: Report from Study
  Country: GB (occurrence: GB)
  Receive Date: 20231206
  Receipt Date: 20231221
  Transmission Date: 20240110
  Serious: Yes (Other)
  Sender: FDA-Public Use
  Company Number: GB-002147023-NVSC2023GB244621

PATIENT
  Sex: Male

DRUGS (1)
  1. KESIMPTA [Suspect]
     Active Substance: OFATUMUMAB
     Indication: Multiple sclerosis
     Dosage: 20 MG, QMO (WK 0,1,2,3,4)
     Route: 058

REACTIONS (5)
  - Lower respiratory tract infection [Unknown]
  - Influenza like illness [Unknown]
  - Malaise [Unknown]
  - Gastrointestinal disorder [Unknown]
  - Cough [Unknown]
